FAERS Safety Report 5001745-5 (Version None)
Quarter: 2006Q2

REPORT INFORMATION
  Report Type: 
  Country: None (occurrence: None)
  Receive Date: 20060512
  Receipt Date: 20060512
  Transmission Date: 20061013
  Serious: Yes (Hospitalization)
  Sender: FDA-Public Use
  Company Number: None

PATIENT
  Sex: Female
  Weight: 58.2 kg

DRUGS (2)
  1. VYTORIN [Suspect]
     Dosage: 10/40 MG PO Q DAY
  2. AMIODARONE  200MG PO DAY [Suspect]
     Dosage: 200 MG PO DAY
     Route: 048

REACTIONS (3)
  - ACTIVATED PARTIAL THROMBOPLASTIN TIME PROLONGED [None]
  - DIFFICULTY IN WALKING [None]
  - RHABDOMYOLYSIS [None]
